FAERS Safety Report 14955359 (Version 2)
Quarter: 2018Q2

REPORT INFORMATION
  Report Type: Report from Study
  Country: MY (occurrence: MY)
  Receive Date: 20180531
  Receipt Date: 20180613
  Transmission Date: 20180711
  Serious: Yes (Other)
  Sender: FDA-Public Use
  Company Number: MY-BEH-2018091156

PATIENT

DRUGS (1)
  1. HUMAN IMMUNOGLOBULIN IV BMW (GENERIC) [Suspect]
     Active Substance: HUMAN IMMUNOGLOBULIN G
     Indication: PRODUCT USED FOR UNKNOWN INDICATION
     Route: 042

REACTIONS (5)
  - Pyrexia [Unknown]
  - Tachypnoea [Unknown]
  - Bronchospasm [Unknown]
  - Tachycardia [Unknown]
  - Chills [Unknown]
